FAERS Safety Report 20682606 (Version 2)
Quarter: 2022Q3

REPORT INFORMATION
  Report Type: Report from Study
  Country: US (occurrence: US)
  Receive Date: 20220407
  Receipt Date: 20220926
  Transmission Date: 20221027
  Serious: No
  Sender: FDA-Public Use
  Company Number: US-SUNOVION-2022SUN001042

PATIENT
  Age: 61 Year
  Sex: Female

DRUGS (2)
  1. KYNMOBI [Suspect]
     Active Substance: APOMORPHINE HYDROCHLORIDE
     Indication: Parkinson^s disease
     Dosage: 15 MG (EVERY 2 HOURS UP TO 5 TIMES PER DAY AS NEEDED.)
     Route: 060
     Dates: start: 20220330
  2. KYNMOBI [Suspect]
     Active Substance: APOMORPHINE HYDROCHLORIDE
     Dosage: UNK
     Route: 060
     Dates: end: 20220920

REACTIONS (4)
  - Nausea [Unknown]
  - Fatigue [Unknown]
  - Somnolence [Unknown]
  - Confusional state [Unknown]

NARRATIVE: CASE EVENT DATE: 20220330
